FAERS Safety Report 7581407-0 (Version None)
Quarter: 2011Q2

REPORT INFORMATION
  Report Type: 
  Country: None (occurrence: None)
  Receive Date: 20110629
  Receipt Date: 20110616
  Transmission Date: 20111010
  Serious: Yes (Hospitalization)
  Sender: FDA-Public Use
  Company Number: PHHY2011CA17826

PATIENT
  Sex: Female

DRUGS (1)
  1. ZOLEDRONIC ACID [Suspect]
     Indication: OSTEOPOROSIS
     Dosage: 5 MG, UNK
     Route: 042
     Dates: start: 20100426

REACTIONS (4)
  - PAIN IN EXTREMITY [None]
  - SLEEP DISORDER [None]
  - MYALGIA [None]
  - ARTERIAL OCCLUSIVE DISEASE [None]
